FAERS Safety Report 13245372 (Version 3)
Quarter: 2017Q1

REPORT INFORMATION
  Report Type: Spontaneous
  Country: JP (occurrence: JP)
  Receive Date: 20170217
  Receipt Date: 20170324
  Transmission Date: 20170428
  Serious: Yes (Hospitalization)
  Sender: FDA-Public Use
  Company Number: JP-ELI_LILLY_AND_COMPANY-JP201702005884

PATIENT
  Age: 74 Year
  Sex: Male
  Weight: 72 kg

DRUGS (4)
  1. 5 FU [Concomitant]
     Active Substance: FLUOROURACIL
     Indication: COLORECTAL CANCER
     Dosage: UNK UNK, 2/M
     Route: 065
     Dates: start: 20170209
  2. CALCIUM FOLINATE [Concomitant]
     Active Substance: LEUCOVORIN CALCIUM
     Indication: COLORECTAL CANCER
     Dosage: UNK UNK, WEEKLY (1/W)
     Route: 065
     Dates: start: 20170209
  3. ERBITUX [Suspect]
     Active Substance: CETUXIMAB
     Indication: COLORECTAL CANCER
     Dosage: 730 MG, UNKNOWN
     Route: 042
     Dates: start: 20170209, end: 20170209
  4. IRINOTECAN [Concomitant]
     Active Substance: IRINOTECAN
     Indication: COLORECTAL CANCER
     Dosage: UNK UNK, WEEKLY (1/W)
     Route: 065
     Dates: start: 20170209

REACTIONS (5)
  - Rash [Recovering/Resolving]
  - Erythema [Recovering/Resolving]
  - Hypersensitivity [Recovered/Resolved]
  - Respiratory disorder [Recovered/Resolved]
  - Blood pressure decreased [Recovered/Resolved]

NARRATIVE: CASE EVENT DATE: 20170209
